FAERS Safety Report 7266061-X (Version None)
Quarter: 2011Q1

REPORT INFORMATION
  Report Type: 
  Country: None (occurrence: None)
  Receive Date: 20110131
  Receipt Date: 20100305
  Transmission Date: 20110831
  Serious: No
  Sender: FDA-Public Use
  Company Number: US-ABBOTT-10P-163-0631817-00

PATIENT
  Sex: Male

DRUGS (1)
  1. LUPRON DEPOT [Suspect]
     Indication: PROSTATE CANCER
     Route: 050

REACTIONS (5)
  - HOT FLUSH [None]
  - HEADACHE [None]
  - GAIT DISTURBANCE [None]
  - HYPERHIDROSIS [None]
  - FEELING ABNORMAL [None]
